FAERS Safety Report 21810168 (Version 1)
Quarter: 2023Q1

REPORT INFORMATION
  Report Type: Spontaneous
  Country: US (occurrence: US)
  Receive Date: 20230103
  Receipt Date: 20230103
  Transmission Date: 20230417
  Serious: Yes (Other)
  Sender: FDA-Public Use
  Company Number: US-drreddys-LIT/USA/22/0159149

PATIENT
  Age: 63 Year
  Sex: Female

DRUGS (4)
  1. SIROLIMUS [Suspect]
     Active Substance: SIROLIMUS
     Indication: Histiocytic sarcoma
     Dosage: SIROLIMUS 2 MG WITH A GOAL TROUGH OF 8-12 NG/ML
  2. SIROLIMUS [Suspect]
     Active Substance: SIROLIMUS
     Indication: PTEN gene mutation
  3. PREDNISONE [Suspect]
     Active Substance: PREDNISONE
     Indication: Histiocytic sarcoma
     Dosage: 1 MG/KG WITH A TAPERING DOSE OVER 3 MONTHS
  4. PREDNISONE [Suspect]
     Active Substance: PREDNISONE
     Indication: PTEN gene mutation
     Dosage: TAPERING DOSE OVER 3 MONTHS

REACTIONS (7)
  - Myelosuppression [Unknown]
  - Anaemia [Unknown]
  - Thrombocytopenia [Unknown]
  - Cytopenia [Not Recovered/Not Resolved]
  - Condition aggravated [Not Recovered/Not Resolved]
  - Therapeutic response unexpected [Unknown]
  - Off label use [Unknown]
